FAERS Safety Report 5722766-0 (Version None)
Quarter: 2008Q2

REPORT INFORMATION
  Report Type: 
  Country: None (occurrence: None)
  Receive Date: 20080429
  Receipt Date: 20080326
  Transmission Date: 20081010
  Serious: No
  Sender: FDA-Public Use
  Company Number: US-ASTRAZENECA-2008UW02182

PATIENT
  Sex: Female

DRUGS (5)
  1. NEXIUM [Suspect]
     Indication: GASTROOESOPHAGEAL REFLUX DISEASE
     Route: 048
  2. ZOLOFT [Concomitant]
  3. RISPERDAL [Concomitant]
  4. BENADRYL [Concomitant]
  5. XANAX [Concomitant]

REACTIONS (2)
  - CHEST PAIN [None]
  - DYSPEPSIA [None]
